FAERS Safety Report 12473293 (Version 1)
Quarter: 2016Q2

REPORT INFORMATION
  Report Type: Spontaneous
  Country: US (occurrence: US)
  Receive Date: 20160616
  Receipt Date: 20160616
  Transmission Date: 20160815
  Serious: Yes (Other)
  Sender: FDA-Public Use
  Company Number: US-DEPOMED, INC.-US-2016DEP009866

PATIENT

DRUGS (4)
  1. GRALISE [Suspect]
     Active Substance: GABAPENTIN
     Dosage: 600 MG, QD
     Route: 048
     Dates: start: 201605, end: 201605
  2. GRALISE [Suspect]
     Active Substance: GABAPENTIN
     Dosage: 900 MG, QD
     Route: 048
     Dates: start: 201605, end: 201605
  3. PERCOCET                           /00446701/ [Concomitant]
     Active Substance: ACETAMINOPHEN\OXYCODONE HYDROCHLORIDE\OXYCODONE TEREPHTHALATE
     Indication: PAIN
     Dosage: UNK
  4. GRALISE [Suspect]
     Active Substance: GABAPENTIN
     Indication: PAIN
     Dosage: 300 MG, QD
     Route: 048
     Dates: start: 201605, end: 201605

REACTIONS (12)
  - Gait disturbance [Unknown]
  - Increased upper airway secretion [Recovering/Resolving]
  - Fear [Unknown]
  - Feeling abnormal [Recovering/Resolving]
  - Drug titration error [Recovered/Resolved]
  - Asthma [Recovering/Resolving]
  - Inappropriate schedule of drug administration [Recovered/Resolved]
  - Memory impairment [Recovering/Resolving]
  - Muscular weakness [Unknown]
  - Somnolence [Recovered/Resolved]
  - Mental impairment [Recovering/Resolving]
  - Off label use [Recovered/Resolved]

NARRATIVE: CASE EVENT DATE: 201605
